FAERS Safety Report 16643438 (Version 1)
Quarter: 2019Q3

REPORT INFORMATION
  Report Type: Spontaneous
  Country: US (occurrence: US)
  Receive Date: 20190729
  Receipt Date: 20190729
  Transmission Date: 20191004
  Serious: Yes (Death)
  Sender: FDA-Public Use
  Company Number: US-TAKEDA-2019TUS045470

PATIENT
  Age: 63 Year
  Sex: Male

DRUGS (1)
  1. TRINTELLIX [Suspect]
     Active Substance: VORTIOXETINE HYDROBROMIDE
     Indication: PRODUCT USED FOR UNKNOWN INDICATION
     Dosage: UNK
     Route: 048
     Dates: end: 20190720

REACTIONS (8)
  - Completed suicide [Fatal]
  - Weight decreased [Unknown]
  - Insomnia [Unknown]
  - Irritability [Unknown]
  - Personality change [Unknown]
  - Tremor [Unknown]
  - Panic attack [Unknown]
  - Feeling abnormal [Unknown]
